FAERS Safety Report 4685195-7 (Version None)
Quarter: 2005Q2

REPORT INFORMATION
  Report Type: 
  Country: None (occurrence: None)
  Receive Date: 20050603
  Receipt Date: 20050520
  Transmission Date: 20051028
  Serious: Yes (Other)
  Sender: FDA-Public Use
  Company Number: L05-IRN-01813-01

PATIENT

DRUGS (2)
  1. INDOMETHACIN [Suspect]
     Indication: HEPATITIS B VIRUS
     Dosage: 25 MG TID
  2. INDOMETHACIN [Suspect]
     Indication: HEPATITIS E ANTIGEN POSITIVE
     Dosage: 25 MG TID

REACTIONS (1)
  - HEPATITIS [None]
